FAERS Safety Report 12904521 (Version 2)
Quarter: 2016Q4

REPORT INFORMATION
  Report Type: Report from Study
  Country: US (occurrence: US)
  Receive Date: 20161102
  Receipt Date: 20161129
  Transmission Date: 20170207
  Serious: Yes (Hospitalization, Other)
  Sender: FDA-Public Use
  Company Number: US-GILEAD-2016-0237891

PATIENT
  Age: 55 Year
  Sex: Female

DRUGS (1)
  1. LEDIPASVIR/SOFOSBUVIR [Suspect]
     Active Substance: LEDIPASVIR\SOFOSBUVIR
     Indication: CHRONIC HEPATITIS C
     Dosage: 1 DF, QD
     Route: 048
     Dates: start: 20161005

REACTIONS (7)
  - Nausea [Unknown]
  - Malaise [Unknown]
  - Vomiting [Recovered/Resolved]
  - Rheumatoid arthritis [Not Recovered/Not Resolved]
  - Irritability [Unknown]
  - Blood potassium increased [Unknown]
  - Fatigue [Unknown]

NARRATIVE: CASE EVENT DATE: 20161103
